FAERS Safety Report 18253392 (Version 6)
Quarter: 2021Q2

REPORT INFORMATION
  Report Type: Spontaneous
  Country: US (occurrence: US)
  Receive Date: 20200910
  Receipt Date: 20210624
  Transmission Date: 20210717
  Serious: Yes (Other)
  Sender: FDA-Public Use
  Company Number: US-PFIZER INC-2020349561

PATIENT
  Age: 72 Year
  Sex: Female
  Weight: 102.06 kg

DRUGS (6)
  1. ARTHROTEC [Suspect]
     Active Substance: DICLOFENAC SODIUM\MISOPROSTOL
     Indication: PAIN
     Dosage: 50 MG
  2. ARTHROTEC [Suspect]
     Active Substance: DICLOFENAC SODIUM\MISOPROSTOL
     Indication: FIBROMYALGIA
     Dosage: 75 MG, AS NEEDED (TAKE 1 TAB BID (TWICE A DAY) PRN (AS NEEDED))
  3. SIMVASTATIN. [Concomitant]
     Active Substance: SIMVASTATIN
     Indication: BLOOD CHOLESTEROL
     Dosage: 40 MG, 1X/DAY
  4. NEXIUM [Concomitant]
     Active Substance: ESOMEPRAZOLE MAGNESIUM
     Indication: GASTROOESOPHAGEAL REFLUX DISEASE
     Dosage: 20 MG, 1X/DAY
  5. ARTHROTEC [Suspect]
     Active Substance: DICLOFENAC SODIUM\MISOPROSTOL
     Indication: ARTHRITIS
     Dosage: 75 MG, 2X/DAY (75 MG TABLET TWICE A DAY)
  6. ARTHROTEC [Suspect]
     Active Substance: DICLOFENAC SODIUM\MISOPROSTOL
     Dosage: 75 MG 2X/DAY
     Route: 048
     Dates: start: 20210609

REACTIONS (5)
  - Gastric disorder [Unknown]
  - Malaise [Recovering/Resolving]
  - Drug dependence [Unknown]
  - Back disorder [Unknown]
  - Intentional product use issue [Unknown]
